FAERS Safety Report 10588969 (Version 2)
Quarter: 2014Q4

REPORT INFORMATION
  Report Type: Spontaneous
  Country: US (occurrence: US)
  Receive Date: 20141117
  Receipt Date: 20141117
  Transmission Date: 20150529
  Serious: No
  Sender: FDA-Public Use
  Company Number: US-DRREDDYS-USA/USA/14/0042364

PATIENT
  Age: 55 Year
  Sex: Female

DRUGS (1)
  1. SUMATRIPTAN INJECTION USP, 6 MG/0.5 ML [Suspect]
     Active Substance: SUMATRIPTAN
     Indication: HEADACHE
     Dosage: INJECT 0.5ML AT ONSET OF HEADACHE. MAY REPEAT IN 2 HOURS. MAXIMUM 2 INJECTIONS PER DAY. NO MORE THAN
     Route: 065

REACTIONS (3)
  - No adverse event [Unknown]
  - Product physical issue [Unknown]
  - Drug dose omission [Unknown]

NARRATIVE: CASE EVENT DATE: 20140806
